FAERS Safety Report 7198971-6 (Version None)
Quarter: 2010Q4

REPORT INFORMATION
  Report Type: 
  Country: None (occurrence: None)
  Receive Date: 20101228
  Receipt Date: 20101217
  Transmission Date: 20110411
  Serious: Yes (Other)
  Sender: FDA-Public Use
  Company Number: US-BIOGENIDEC-2010BI041089

PATIENT
  Age: 48 Year
  Sex: Male
  Weight: 68 kg

DRUGS (4)
  1. TYSABRI [Suspect]
     Indication: MULTIPLE SCLEROSIS
     Route: 042
     Dates: start: 20101105
  2. LAMOTRIGINE [Concomitant]
     Indication: CONVULSION
     Dates: start: 20090101
  3. LAMOTRIGINE [Concomitant]
     Indication: GRAND MAL CONVULSION
     Dates: start: 20090101
  4. LAMOTRIGINE [Concomitant]
     Indication: PETIT MAL EPILEPSY
     Dates: start: 20090101

REACTIONS (13)
  - BALANCE DISORDER [None]
  - DIARRHOEA [None]
  - DIZZINESS [None]
  - FALL [None]
  - GRAND MAL CONVULSION [None]
  - LIVER FUNCTION TEST ABNORMAL [None]
  - LOSS OF CONSCIOUSNESS [None]
  - MYALGIA [None]
  - PETIT MAL EPILEPSY [None]
  - SPEECH DISORDER [None]
  - TONGUE INJURY [None]
  - URINARY TRACT INFECTION [None]
  - VISUAL IMPAIRMENT [None]
